FAERS Safety Report 9579585 (Version 1)
Quarter: 2013Q4

REPORT INFORMATION
  Report Type: Report from Study
  Country: DE (occurrence: DE)
  Receive Date: 20131002
  Receipt Date: 20131002
  Transmission Date: 20140711
  Serious: Yes (Hospitalization)
  Sender: FDA-Public Use
  Company Number: DE-ROCHE-1282208

PATIENT
  Age: 63 Year
  Sex: Female
  Weight: 67 kg

DRUGS (3)
  1. BEVACIZUMAB [Suspect]
     Indication: OVARIAN CANCER
     Dosage: DATE OF LAST DOSE OF BEVACIZUMAB PRIOR TO EVENT 02/SEP/2013
     Route: 042
     Dates: start: 20120827
  2. CARBOPLATIN [Suspect]
     Indication: OVARIAN CANCER
     Dosage: DATE OF LAST DOSE OF CARBOPLATIN PRIOR TO EVENT 11/DEC/2012
     Route: 042
     Dates: start: 20120827
  3. PACLITAXEL [Suspect]
     Indication: OVARIAN CANCER
     Dosage: DATE OF LAST DOSE OF PACLITAXEL PRIOR TO EVENT 11/DEC/2012
     Route: 042
     Dates: start: 20120827

REACTIONS (1)
  - Hydronephrosis [Recovered/Resolved]
